FAERS Safety Report 15731380 (Version 1)
Quarter: 2018Q4

REPORT INFORMATION
  Report Type: Spontaneous
  Country: FR (occurrence: FR)
  Receive Date: 20181217
  Receipt Date: 20181217
  Transmission Date: 20190205
  Serious: Yes (Hospitalization, Other)
  Sender: FDA-Public Use
  Company Number: FR-SA-2018SA340631

PATIENT
  Age: 66 Year
  Sex: Male
  Weight: 50 kg

DRUGS (8)
  1. RIFAMPICIN [Suspect]
     Active Substance: RIFAMPIN
     Indication: INTERVERTEBRAL DISCITIS
     Dosage: 900 MG QD
     Route: 048
     Dates: start: 20181020, end: 201811
  2. PARACETAMOL [Concomitant]
     Active Substance: ACETAMINOPHEN
  3. SULFAMETHOXAZOLE/TRIMETHOPRIM [Suspect]
     Active Substance: SULFAMETHOXAZOLE\TRIMETHOPRIM
     Indication: INTERVERTEBRAL DISCITIS
     Dosage: 3 DF QD
     Route: 048
     Dates: start: 20181020, end: 201811
  4. MACROGOL STEARATE [Concomitant]
     Active Substance: POLYETHYLENE GLYCOLS
  5. SKENAN [Concomitant]
     Active Substance: MORPHINE SULFATE
  6. PANTOPRAZOLE [Concomitant]
     Active Substance: PANTOPRAZOLE
  7. ACTISKENAN [Concomitant]
     Active Substance: MORPHINE SULFATE
  8. FLUVASTATINE [FLUVASTATIN] [Concomitant]

REACTIONS (1)
  - Haemophagocytic lymphohistiocytosis [Not Recovered/Not Resolved]

NARRATIVE: CASE EVENT DATE: 20181111
